FAERS Safety Report 14723116 (Version 1)
Quarter: 2018Q2

REPORT INFORMATION
  Report Type: Spontaneous
  Country: AU (occurrence: AU)
  Receive Date: 20180405
  Receipt Date: 20180405
  Transmission Date: 20180711
  Serious: Yes (Other)
  Sender: FDA-Public Use
  Company Number: AU-TEVA-2018-AU-876045

PATIENT
  Age: 30 Year
  Sex: Male

DRUGS (7)
  1. CODEINE [Suspect]
     Active Substance: CODEINE
     Route: 065
  2. METHYLAMPHETAMINE HYDROCHLORIDE (METAMFETAMINE) [Suspect]
     Active Substance: METHAMPHETAMINE HYDROCHLORIDE
     Route: 065
  3. PARACETAMOL [Suspect]
     Active Substance: ACETAMINOPHEN
     Route: 065
  4. VALIUM [Suspect]
     Active Substance: DIAZEPAM
     Route: 065
  5. TRAMADOL. [Suspect]
     Active Substance: TRAMADOL
     Route: 065
  6. DIAZEPAM. [Suspect]
     Active Substance: DIAZEPAM
     Route: 065
  7. MODAVIGIL [Suspect]
     Active Substance: MODAFINIL
     Dosage: MODAVIGIL 100MG
     Route: 048

REACTIONS (3)
  - Alcohol poisoning [Unknown]
  - Toxicity to various agents [Unknown]
  - Pneumonia [Unknown]
